FAERS Safety Report 9579290 (Version 1)
Quarter: 2013Q4

REPORT INFORMATION
  Report Type: Spontaneous
  Country: US (occurrence: US)
  Receive Date: 20131001
  Receipt Date: 20131001
  Transmission Date: 20140711
  Serious: No
  Sender: FDA-Public Use
  Company Number: US-AMGEN-USASP2013017370

PATIENT
  Age: 52 Year
  Sex: Male

DRUGS (8)
  1. ENBREL [Suspect]
     Indication: PRODUCT USED FOR UNKNOWN INDICATION
     Dosage: 50 MG, 2 TIMES/WK
     Route: 058
  2. CALCIUM [Concomitant]
     Dosage: 600 UNK, UNK
  3. FISH OIL [Concomitant]
     Dosage: UNK
  4. TRIPLE FLEX [Concomitant]
     Dosage: UNK
  5. LYRICA [Concomitant]
     Dosage: 100 MG, UNK
  6. SULFASALAZIN [Concomitant]
     Dosage: 500 MG, UNK
  7. RANITIDINE [Concomitant]
     Dosage: 150 MG, UNK
  8. COUMADIN                           /00014802/ [Concomitant]
     Dosage: 1 MG, UNK

REACTIONS (1)
  - Drug ineffective [Unknown]
